FAERS Safety Report 5408147-8 (Version None)
Quarter: 2007Q3

REPORT INFORMATION
  Report Type: 
  Country: None (occurrence: None)
  Receive Date: 20070808
  Receipt Date: 20070730
  Transmission Date: 20080115
  Serious: Yes (Other)
  Sender: FDA-Public Use
  Company Number: US-JNJFOC-20070202089

PATIENT
  Sex: Male
  Weight: 86.18 kg

DRUGS (7)
  1. DURAGESIC-100 [Suspect]
     Route: 062
  2. DURAGESIC-100 [Suspect]
     Route: 062
  3. DURAGESIC-100 [Suspect]
     Route: 062
  4. DURAGESIC-100 [Suspect]
     Indication: SURGERY
     Route: 062
  5. DURAGESIC-100 [Suspect]
     Indication: PAIN
     Route: 062
  6. LORTAB [Concomitant]
     Indication: PAIN
     Route: 048
  7. TENORMIN [Concomitant]
     Indication: BLOOD PRESSURE
     Route: 048

REACTIONS (5)
  - APPLICATION SITE PRURITUS [None]
  - ARACHNOIDITIS [None]
  - INADEQUATE ANALGESIA [None]
  - INTERVERTEBRAL DISC DEGENERATION [None]
  - MUSCLE SPASMS [None]
